FAERS Safety Report 4282422-5 (Version None)
Quarter: 2004Q1

REPORT INFORMATION
  Report Type: 
  Country: None (occurrence: None)
  Receive Date: 20040112
  Receipt Date: 20031117
  Transmission Date: 20041129
  Serious: No
  Sender: FDA-Public Use
  Company Number: PHEH2003US10568

PATIENT
  Age: 55 Year
  Sex: Female

DRUGS (1)
  1. ELIDEL [Suspect]
     Indication: ROSACEA
     Dosage: QD, TOPICAL
     Route: 061
     Dates: start: 20030801

REACTIONS (3)
  - ARTHRALGIA [None]
  - BACK PAIN [None]
  - NECK PAIN [None]
